FAERS Safety Report 8999334 (Version 1)
Quarter: 2013Q1

REPORT INFORMATION
  Report Type: Spontaneous
  Country: US (occurrence: US)
  Receive Date: 20130103
  Receipt Date: 20130103
  Transmission Date: 20140127
  Serious: No
  Sender: FDA-Public Use
  Company Number: US-009507513-1212USA008815

PATIENT
  Age: 41 None
  Sex: Female

DRUGS (6)
  1. VICTRELIS [Suspect]
     Indication: HEPATITIS C
     Dosage: 400 MG, (2DF) TID
     Route: 048
     Dates: start: 20121211
  2. PEGASYS [Suspect]
     Dosage: UNK
     Dates: start: 20121105
  3. RIBAVIRIN (WARRICK) [Suspect]
     Dosage: UNK
     Route: 048
     Dates: start: 20121105
  4. NOVOLOG [Concomitant]
  5. OMEPRAZOLE [Concomitant]
  6. NADOLOL [Concomitant]

REACTIONS (2)
  - Proctalgia [Unknown]
  - Adverse event [Unknown]
